FAERS Safety Report 13535548 (Version 1)
Quarter: 2017Q2

REPORT INFORMATION
  Report Type: Spontaneous
  Country: US (occurrence: US)
  Receive Date: 20170510
  Receipt Date: 20170510
  Transmission Date: 20170830
  Serious: Yes (Hospitalization)
  Sender: FDA-Public Use
  Company Number: None

PATIENT
  Age: 67 Year
  Sex: Male
  Weight: 80.7 kg

DRUGS (1)
  1. ENALAPRIL [Suspect]
     Active Substance: ENALAPRIL
     Indication: HYPERTENSION
     Dosage: 2 TAB QID PO
     Route: 048
     Dates: start: 20160422, end: 20161005

REACTIONS (5)
  - Angioedema [None]
  - Dyspnoea exertional [None]
  - Wheezing [None]
  - Cough [None]
  - Neck pain [None]

NARRATIVE: CASE EVENT DATE: 20161005
